FAERS Safety Report 23993426 (Version 3)
Quarter: 2024Q3

REPORT INFORMATION
  Report Type: Spontaneous
  Country: US (occurrence: US)
  Receive Date: 20240620
  Receipt Date: 20240705
  Transmission Date: 20241016
  Serious: Yes (Other)
  Sender: UCB
  Company Number: US-UCBSA-2024031208

PATIENT
  Sex: Female

DRUGS (1)
  1. NAYZILAM [Suspect]
     Active Substance: MIDAZOLAM
     Indication: Epilepsy
     Dosage: 50 MILLIGRAM PER MILLILITRE,1 NAYZILAM NASAL SPRAY AS NEEDED
     Route: 045
     Dates: start: 20231101

REACTIONS (5)
  - Seizure cluster [Recovered/Resolved]
  - Nasal discomfort [Not Recovered/Not Resolved]
  - Device issue [Unknown]
  - Suspected counterfeit product [Unknown]
  - Product dose omission issue [Unknown]
